FAERS Safety Report 25274395 (Version 1)
Quarter: 2025Q2

REPORT INFORMATION
  Report Type: Spontaneous
  Country: US (occurrence: US)
  Receive Date: 20250506
  Receipt Date: 20250506
  Transmission Date: 20250716
  Serious: No
  Sender: PFIZER
  Company Number: US-PFIZER INC-202500092961

PATIENT
  Age: 62 Year
  Sex: Female

DRUGS (2)
  1. CLEOCIN [Suspect]
     Active Substance: CLINDAMYCIN PHOSPHATE
     Indication: Infection
     Dosage: 300 MG, 4X/DAY
     Dates: start: 20241118
  2. KEFLEX [Suspect]
     Active Substance: CEPHALEXIN
     Indication: Infection
     Dosage: 500 MG, 4X/DAY
     Dates: start: 20241114, end: 20241118

REACTIONS (2)
  - Hypersensitivity [Unknown]
  - Abnormal faeces [Unknown]
